FAERS Safety Report 5842193-5 (Version None)
Quarter: 2008Q3

REPORT INFORMATION
  Report Type: 
  Country: None (occurrence: None)
  Receive Date: 20080731
  Receipt Date: 20080515
  Transmission Date: 20090109
  Serious: No
  Sender: FDA-Public Use
  Company Number: US200805003352

PATIENT
  Age: 46 Year
  Sex: Female

DRUGS (2)
  1. BYETTA [Suspect]
     Dosage: 5 UG, SUBCUTANEOUS ; 10 UG, SUBCUTANEOUS
     Route: 058
     Dates: start: 20071002
  2. EXENATIDE [Concomitant]

REACTIONS (3)
  - ABNORMAL SENSATION IN EYE [None]
  - HEADACHE [None]
  - NAUSEA [None]
